FAERS Safety Report 8206314-1 (Version None)
Quarter: 2012Q1

REPORT INFORMATION
  Report Type: 
  Country: None (occurrence: None)
  Receive Date: 20120313
  Receipt Date: 20120306
  Transmission Date: 20120608
  Serious: Yes (Other)
  Sender: FDA-Public Use
  Company Number: PHHY2011CA47316

PATIENT
  Sex: Female
  Weight: 68.027 kg

DRUGS (1)
  1. EXTAVIA [Suspect]
     Indication: CLINICALLY ISOLATED SYNDROME
     Dosage: 8 MIU, QOD
     Route: 058
     Dates: start: 20110504

REACTIONS (6)
  - VISION BLURRED [None]
  - OPTIC NEURITIS [None]
  - VISUAL IMPAIRMENT [None]
  - CHILLS [None]
  - SCOTOMA [None]
  - MYALGIA [None]
